FAERS Safety Report 23217854 (Version 1)
Quarter: 2023Q4

REPORT INFORMATION
  Report Type: Spontaneous
  Country: CN (occurrence: CN)
  Receive Date: 20231122
  Receipt Date: 20231122
  Transmission Date: 20240110
  Serious: Yes (Disabling, Other)
  Sender: FDA-Public Use
  Company Number: CN-PFIZER INC-PV202300188779

PATIENT
  Age: 87 Year
  Sex: Male
  Weight: 62 kg

DRUGS (5)
  1. VFEND [Suspect]
     Active Substance: VORICONAZOLE
     Indication: Pneumonia
     Dosage: 400 MG Q12H
     Route: 048
     Dates: start: 20230927
  2. VFEND [Suspect]
     Active Substance: VORICONAZOLE
     Dosage: 200 MG Q12H
     Route: 048
     Dates: start: 20230930, end: 20231027
  3. MEROPENEM [Suspect]
     Active Substance: MEROPENEM
     Indication: Pneumonia
     Dosage: 0.5 G Q12H
     Route: 041
     Dates: start: 20231010, end: 20231011
  4. MEROPENEM [Suspect]
     Active Substance: MEROPENEM
     Dosage: 1 G Q12H
     Route: 041
     Dates: start: 20231011, end: 20231025
  5. SODIUM CHLORIDE [Concomitant]
     Active Substance: SODIUM CHLORIDE
     Indication: Vehicle solution use
     Dosage: 100 ML Q12H
     Route: 041
     Dates: start: 20231010, end: 20231025

REACTIONS (2)
  - Hepatic function abnormal [Recovering/Resolving]
  - Drug level increased [Unknown]

NARRATIVE: CASE EVENT DATE: 20231007
